FAERS Safety Report 8854284 (Version 3)
Quarter: 2013Q1

REPORT INFORMATION
  Report Type: Spontaneous
  Country: US (occurrence: US)
  Receive Date: 20121023
  Receipt Date: 20130311
  Transmission Date: 20140127
  Serious: Yes (Other)
  Sender: FDA-Public Use
  Company Number: US-PFIZER INC-2012261230

PATIENT
  Age: 64 Year
  Sex: Female
  Weight: 82 kg

DRUGS (15)
  1. NEURONTIN [Suspect]
     Indication: NEUROPATHY PERIPHERAL
     Dosage: 1200 MG, 3X/DAY (600 MG, 2 TID)
     Route: 048
  2. NEURONTIN [Suspect]
     Indication: ARTHRITIS
  3. EFFEXOR XR [Suspect]
     Indication: DEPRESSION
     Dosage: 150 MG, 2X/DAY
     Route: 048
  4. ASPIRIN [Concomitant]
     Dosage: UNK, 1X/DAY
  5. CLOPIDOGREL [Concomitant]
     Dosage: 75 MG, 3X/DAY
  6. GLYBURIDE [Concomitant]
     Dosage: 5 MG, 2X/DAY
  7. CARVEDILOL [Concomitant]
     Dosage: 12.5 MG, 2X/DAY
  8. CYANOCOBALAMIN [Concomitant]
     Dosage: 1000 UG, MONTHLY
  9. METFORMIN [Concomitant]
     Dosage: 500 MG, 2X/DAY
  10. NORCO [Concomitant]
     Indication: PAIN
     Dosage: UNK, AS NEEDED
  11. SYNTHROID [Concomitant]
     Indication: THYROID DISORDER
     Dosage: 175 UG, UNK
  12. DEXILANT [Concomitant]
     Dosage: 60 MG, 1X/DAY
  13. DIOVAN HCT [Concomitant]
     Dosage: [VALSARTAN 160MG /HYDROCHLOROTHIAZIDE 25MG], UNK
  14. SOMA [Concomitant]
     Dosage: UNK, 3X\DAY
  15. ISOSORBIDE [Concomitant]
     Dosage: 30 MG, 2X/DAY

REACTIONS (2)
  - Cardiac disorder [Unknown]
  - Intervertebral disc protrusion [Unknown]
